FAERS Safety Report 8604795-2 (Version None)
Quarter: 2012Q3

REPORT INFORMATION
  Report Type: 
  Country: None (occurrence: None)
  Receive Date: 20120820
  Receipt Date: 20120808
  Transmission Date: 20120928
  Serious: Yes (Hospitalization)
  Sender: FDA-Public Use
  Company Number: US-ELI_LILLY_AND_COMPANY-US201207002791

PATIENT
  Sex: Female

DRUGS (4)
  1. FORTEO [Suspect]
     Dosage: 20 UG, QD
     Dates: start: 20120330
  2. FOSAMAX [Concomitant]
     Dosage: UNK
  3. FORTEO [Suspect]
     Indication: OSTEOPOROSIS
     Dosage: 20 UG, QD
     Dates: start: 20120330
  4. FORTEO [Suspect]
     Dosage: 20 UG, QD

REACTIONS (4)
  - PRURITUS [None]
  - FEMUR FRACTURE [None]
  - URTICARIA [None]
  - ECZEMA [None]
